FAERS Safety Report 21551841 (Version 3)
Quarter: 2022Q4

REPORT INFORMATION
  Report Type: Spontaneous
  Country: US (occurrence: US)
  Receive Date: 20221104
  Receipt Date: 20221215
  Transmission Date: 20230112
  Serious: No
  Sender: FDA-Public Use
  Company Number: US-GLAXOSMITHKLINE-US2022157955

PATIENT
  Sex: Female

DRUGS (3)
  1. ZEJULA [Suspect]
     Active Substance: NIRAPARIB
     Indication: Lung carcinoma cell type unspecified stage 0
     Dosage: 100 MG, QD
     Dates: start: 20220818
  2. ZEJULA [Suspect]
     Active Substance: NIRAPARIB
     Indication: Neuroendocrine tumour
     Dosage: 200 MG, QD
     Dates: start: 20221108
  3. ZEJULA [Suspect]
     Active Substance: NIRAPARIB
     Dosage: 200 MG, QD

REACTIONS (8)
  - Vomiting [Not Recovered/Not Resolved]
  - Nausea [Not Recovered/Not Resolved]
  - Influenza like illness [Unknown]
  - Retching [Unknown]
  - Intentional product misuse [Unknown]
  - Off label use [Unknown]
  - Product dose confusion [Unknown]
  - Inappropriate schedule of product administration [Unknown]
